FAERS Safety Report 7592228-7 (Version None)
Quarter: 2011Q3

REPORT INFORMATION
  Report Type: 
  Country: None (occurrence: None)
  Receive Date: 20110706
  Receipt Date: 20110624
  Transmission Date: 20111222
  Serious: Yes (Hospitalization, Other)
  Sender: FDA-Public Use
  Company Number: US-ELI_LILLY_AND_COMPANY-US201106008405

PATIENT
  Sex: Female

DRUGS (7)
  1. SPIRIVA [Concomitant]
     Dosage: UNK
     Route: 065
  2. FEXOFENADINE [Concomitant]
     Dosage: UNK
     Route: 065
  3. FORTEO [Suspect]
     Indication: OSTEOPOROSIS
     Dosage: 20 UG, QD
     Route: 065
     Dates: start: 20100101
  4. VITAMIN D [Concomitant]
     Dosage: 1000 IU, UNKNOWN
     Route: 065
  5. METOPROLOL TARTRATE [Concomitant]
     Dosage: 50 MG, UNKNOWN
  6. ESOMEPRAZOLE MAGNESIUM [Concomitant]
     Dosage: UNK
     Route: 065
  7. ASACOL [Concomitant]
     Dosage: UNK
     Route: 065

REACTIONS (4)
  - LARGE INTESTINAL ULCER [None]
  - GASTROINTESTINAL DISORDER [None]
  - HAEMORRHAGE [None]
  - BRONCHITIS CHRONIC [None]
